FAERS Safety Report 19143825 (Version 1)
Quarter: 2021Q2

REPORT INFORMATION
  Report Type: Spontaneous
  Country: US (occurrence: US)
  Receive Date: 20210416
  Receipt Date: 20210416
  Transmission Date: 20210717
  Serious: Yes (Other)
  Sender: FDA-Public Use
  Company Number: US-SUN PHARMACEUTICAL INDUSTRIES LTD-2021R1-290802

PATIENT
  Age: 33 Year
  Sex: Female

DRUGS (1)
  1. ACETAMINOPHEN. [Suspect]
     Active Substance: ACETAMINOPHEN
     Indication: PRODUCT USED FOR UNKNOWN INDICATION
     Dosage: UNK, 30 GRAM
     Route: 065

REACTIONS (7)
  - Exposure during pregnancy [Unknown]
  - Acute hepatic failure [Recovered/Resolved]
  - Renal injury [Recovered/Resolved]
  - Acute lung injury [Recovered/Resolved]
  - Cardiac failure congestive [Recovered/Resolved]
  - Intentional overdose [Unknown]
  - Toxicity to various agents [Unknown]
